FAERS Safety Report 4673321-5 (Version None)
Quarter: 2005Q2

REPORT INFORMATION
  Report Type: 
  Country: None (occurrence: None)
  Receive Date: 20050524
  Receipt Date: 20050524
  Transmission Date: 20051028
  Serious: Yes (Hospitalization)
  Sender: FDA-Public Use
  Company Number: None

PATIENT
  Age: 58 Year
  Sex: Male
  Weight: 94.8018 kg

DRUGS (8)
  1. MORPHINE SULFATE [Suspect]
     Indication: BACK PAIN
     Dosage: 3  TABLET  TID ORAL
     Route: 048
     Dates: start: 19850101, end: 20050224
  2. ACYCLOVIR [Concomitant]
  3. SILDENAFIL CITRATE [Concomitant]
  4. FLUOXETINE [Concomitant]
  5. GUAIFENESIN [Concomitant]
  6. ATENOLOL [Concomitant]
  7. FLUNISOLIDE [Concomitant]
  8. GABAPENTIN [Concomitant]

REACTIONS (6)
  - BLOOD PRESSURE SYSTOLIC DECREASED [None]
  - CONFUSIONAL STATE [None]
  - DEPRESSED LEVEL OF CONSCIOUSNESS [None]
  - LETHARGY [None]
  - MENTAL STATUS CHANGES [None]
  - VOMITING [None]
